FAERS Safety Report 16651012 (Version 1)
Quarter: 2019Q3

REPORT INFORMATION
  Report Type: Spontaneous
  Country: US (occurrence: US)
  Receive Date: 20190617
  Receipt Date: 20190617
  Transmission Date: 20191004
  Serious: Yes (Other)
  Sender: FDA-Public Use
  Company Number: None

PATIENT
  Age: 71 Year
  Sex: Female
  Weight: 86.18 kg

DRUGS (5)
  1. GENERIC OVER 50 VITAMIN [Concomitant]
  2. STIOLTO RESPIMAT [Concomitant]
     Active Substance: OLODATEROL HYDROCHLORIDE\TIOTROPIUM BROMIDE MONOHYDRATE
  3. YUPELRI [Suspect]
     Active Substance: REVEFENACIN
     Indication: CHRONIC OBSTRUCTIVE PULMONARY DISEASE
     Dosage: ?          OTHER STRENGTH:175 MCG/3ML;QUANTITY:1 DF DOSAGE FORM;OTHER ROUTE:NEBULIZER?
     Route: 055
     Dates: start: 20190329, end: 20190401
  4. LOSARTAN. [Concomitant]
     Active Substance: LOSARTAN
  5. VIT D [Concomitant]
     Active Substance: VITAMIN D NOS

REACTIONS (3)
  - Chest discomfort [None]
  - Dyspnoea [None]
  - Obstructive airways disorder [None]

NARRATIVE: CASE EVENT DATE: 20190329
